FAERS Safety Report 4794520-8 (Version None)
Quarter: 2005Q4

REPORT INFORMATION
  Report Type: 
  Country: None (occurrence: None)
  Receive Date: 20051011
  Receipt Date: 20050926
  Transmission Date: 20060501
  Serious: Yes (Other)
  Sender: FDA-Public Use
  Company Number: GB-JNJFOC-20050901250

PATIENT
  Sex: Male
  Weight: 73 kg

DRUGS (1)
  1. CONCERTA [Suspect]
     Route: 048

REACTIONS (1)
  - WEIGHT DECREASED [None]
